FAERS Safety Report 17975774 (Version 2)
Quarter: 2020Q3

REPORT INFORMATION
  Report Type: Spontaneous
  Country: DE (occurrence: DE)
  Receive Date: 20200702
  Receipt Date: 20200722
  Transmission Date: 20201103
  Serious: Yes (Other)
  Sender: FDA-Public Use
  Company Number: NVSC2020DE185626

PATIENT
  Age: 69 Year
  Sex: Female

DRUGS (5)
  1. MILNANEURAX [Suspect]
     Active Substance: MILNACIPRAN HYDROCHLORIDE
     Indication: DEPRESSION
     Dosage: 100 MG, QD (2X 50 MG)
     Route: 048
  2. MILNANEURAX [Suspect]
     Active Substance: MILNACIPRAN HYDROCHLORIDE
     Dosage: 75 MG, QD (25 MG 3 TIMES A DAY)
     Route: 048
     Dates: start: 2019, end: 202002
  3. BISOPROLOL [Suspect]
     Active Substance: BISOPROLOL
     Indication: PRODUCT USED FOR UNKNOWN INDICATION
     Dosage: 1 DF, QD (1 TABLET IN THE EVENING)
     Route: 065
  4. ATORVASTATIN [Suspect]
     Active Substance: ATORVASTATIN
     Indication: BLOOD CHOLESTEROL
     Dosage: UNK
     Route: 048
     Dates: start: 202001
  5. BISOPROLOL [Suspect]
     Active Substance: BISOPROLOL
     Dosage: 2 DF, QD (1 TABLET IN THE MORNING + 1 TABLET IN THE EVENING)
     Route: 065

REACTIONS (8)
  - Malaise [Recovering/Resolving]
  - Myocardial infarction [Recovering/Resolving]
  - Chills [Recovering/Resolving]
  - Hot flush [Recovering/Resolving]
  - Fatigue [Recovering/Resolving]
  - Drug ineffective [Unknown]
  - Agitation [Recovering/Resolving]
  - Dyspnoea [Recovering/Resolving]

NARRATIVE: CASE EVENT DATE: 2020
